FAERS Safety Report 9439267 (Version 6)
Quarter: 2014Q3

REPORT INFORMATION
  Report Type: Report from Study
  Country: CN (occurrence: CN)
  Receive Date: 20130804
  Receipt Date: 20140730
  Transmission Date: 20150326
  Serious: Yes (Death, Other)
  Sender: FDA-Public Use
  Company Number: CN-ROCHE-1256702

PATIENT
  Age: 71 Year
  Sex: Female
  Weight: 60 kg

DRUGS (1)
  1. AVASTIN [Suspect]
     Active Substance: BEVACIZUMAB
     Indication: RECTAL CANCER
     Route: 042
     Dates: start: 20111126

REACTIONS (9)
  - Death [Fatal]
  - Diarrhoea [Unknown]
  - Bone marrow failure [Recovered/Resolved]
  - White blood cell count decreased [Unknown]
  - Liver disorder [Unknown]
  - Pain [Unknown]
  - Mood altered [Unknown]
  - Platelet count decreased [Recovered/Resolved]
  - Asthenia [Not Recovered/Not Resolved]

NARRATIVE: CASE EVENT DATE: 20130619
